FAERS Safety Report 6662130-3 (Version None)
Quarter: 2010Q1

REPORT INFORMATION
  Report Type: 
  Country: None (occurrence: None)
  Receive Date: 20100331
  Receipt Date: 20100319
  Transmission Date: 20100710
  Serious: Yes (Hospitalization)
  Sender: FDA-Public Use
  Company Number: DE-PFIZER INC-2009265882

PATIENT
  Age: 57 Year
  Sex: Male
  Weight: 84 kg

DRUGS (5)
  1. SUNITINIB MALATE [Suspect]
     Indication: HEPATIC NEOPLASM MALIGNANT
     Dosage: 37.5 MG, 1X/DAY
     Route: 048
     Dates: start: 20090811
  2. PANTOPRAZOL [Concomitant]
  3. AMLODIPINE [Concomitant]
     Dosage: UNK
     Dates: start: 20090816
  4. HYDROCHLOROTHIAZIDE [Concomitant]
     Dosage: UNK
     Dates: start: 20090816
  5. PROPRANOLOL [Concomitant]

REACTIONS (2)
  - HEPATIC ENCEPHALOPATHY [None]
  - NAUSEA [None]
